FAERS Safety Report 13719414 (Version 1)
Quarter: 2017Q3

REPORT INFORMATION
  Report Type: Other
  Country: None (occurrence: US)
  Receive Date: 20170705
  Receipt Date: 20170705
  Transmission Date: 20171127
  Serious: Yes (Other)
  Sender: FDA-Public Use
  Company Number: US-GUTHY-RENKER LLC-2022960

PATIENT
  Age: 26 Year
  Sex: Female

DRUGS (4)
  1. PROACTIV PLUS SKIN PURIFYING MASK [Suspect]
     Active Substance: SULFUR
     Route: 061
     Dates: start: 20151101
  2. TYLENOL, BENADRYL, EPI PEN AS NEEDED [Concomitant]
  3. PROACTIV SOLUTION RENEWING CLEANSER [Suspect]
     Active Substance: BENZOYL PEROXIDE
     Indication: ACNE
     Route: 061
     Dates: start: 20151020, end: 20151101
  4. PROACTIV REPAIRING TREATMENT [Suspect]
     Active Substance: BENZOYL PEROXIDE
     Route: 061
     Dates: start: 20151020, end: 20151101

REACTIONS (2)
  - Urticaria [None]
  - Throat tightness [Recovered/Resolved]

NARRATIVE: CASE EVENT DATE: 20151101
